FAERS Safety Report 5029388-8 (Version None)
Quarter: 2006Q2

REPORT INFORMATION
  Report Type: 
  Country: None (occurrence: None)
  Receive Date: 20060614
  Receipt Date: 20060530
  Transmission Date: 20061013
  Serious: Yes (Hospitalization)
  Sender: FDA-Public Use
  Company Number: 2006001066

PATIENT
  Age: 67 Year
  Sex: Male
  Weight: 70.6251 kg

DRUGS (6)
  1. ERLOTINIB (TABLET)  (ERLOTINIB HCL) [Suspect]
     Indication: NON-SMALL CELL LUNG CANCER
     Dosage: 150 MG (QD), ORAL
     Route: 048
     Dates: start: 20050925, end: 20051220
  2. ERLOTINIB (TABLET)  (ERLOTINIB HCL) [Suspect]
     Indication: NON-SMALL CELL LUNG CANCER
     Dosage: 150 MG (QD), ORAL
     Route: 048
     Dates: start: 20060315, end: 20060511
  3. BEVACIZUMAB (INJECTION FOR INFUSION) [Suspect]
     Indication: NON-SMALL CELL LUNG CANCER
     Dosage: 15MG/KG (Q3W), INTRAVENOUS; SEE IMAGE
     Route: 042
     Dates: start: 20050928, end: 20051220
  4. BEVACIZUMAB (INJECTION FOR INFUSION) [Suspect]
     Indication: NON-SMALL CELL LUNG CANCER
     Dosage: 15MG/KG (Q3W), INTRAVENOUS; SEE IMAGE
     Route: 042
     Dates: start: 20051221, end: 20060222
  5. BEVACIZUMAB (INJECTION FOR INFUSION) [Suspect]
     Indication: NON-SMALL CELL LUNG CANCER
     Dosage: 15MG/KG (Q3W), INTRAVENOUS; SEE IMAGE
     Route: 042
     Dates: start: 20060315
  6. PACLITAXEL [Suspect]
     Dates: start: 20051221, end: 20060222

REACTIONS (2)
  - PNEUMONIA ASPIRATION [None]
  - PNEUMONITIS [None]
